FAERS Safety Report 9471421 (Version 2)
Quarter: 2013Q3

REPORT INFORMATION
  Report Type: Spontaneous
  Country: US (occurrence: US)
  Receive Date: 20130822
  Receipt Date: 20130822
  Transmission Date: 20140515
  Serious: Yes (Other)
  Sender: FDA-Public Use
  Company Number: CHPA2013US010647

PATIENT
  Age: 65 Year
  Sex: Female

DRUGS (3)
  1. SLOW FE BROWN [Suspect]
     Indication: ANAEMIA
     Dosage: 1 DF, QD
     Route: 048
  2. SLOW FE BROWN [Suspect]
     Dosage: 1-2 DF, QD
     Route: 048
  3. SLOW FE BROWN [Suspect]
     Dosage: 3 DF, QD
     Route: 048

REACTIONS (10)
  - Asthma [Recovering/Resolving]
  - Dysphonia [Recovering/Resolving]
  - Cough [Recovering/Resolving]
  - Haemoglobin decreased [Not Recovered/Not Resolved]
  - Blood iron decreased [Not Recovered/Not Resolved]
  - Diarrhoea [Not Recovered/Not Resolved]
  - Constipation [Recovered/Resolved]
  - Therapeutic response decreased [Unknown]
  - Incorrect dose administered [Unknown]
  - Incorrect drug administration duration [Unknown]
